FAERS Safety Report 5346009-5 (Version None)
Quarter: 2007Q2

REPORT INFORMATION
  Report Type: 
  Country: None (occurrence: None)
  Receive Date: 20070605
  Receipt Date: 20070522
  Transmission Date: 20071010
  Serious: Yes (Death, Other)
  Sender: FDA-Public Use
  Company Number: US-ELI_LILLY_AND_COMPANY-US200705005621

PATIENT
  Age: 45 Year
  Sex: Male

DRUGS (1)
  1. XIGRIS [Suspect]
     Dosage: UNK, UNK
     Dates: start: 20060101, end: 20060101

REACTIONS (2)
  - DEATH [None]
  - HAEMORRHAGE [None]
